FAERS Safety Report 25507185 (Version 1)
Quarter: 2025Q3

REPORT INFORMATION
  Report Type: Spontaneous
  Country: EU (occurrence: EU)
  Receive Date: 20250703
  Receipt Date: 20250703
  Transmission Date: 20251021
  Serious: Yes (Hospitalization)
  Sender: BIOGEN
  Company Number: EU-BIOGEN-2025BI01315868

PATIENT
  Age: 69 Year
  Sex: Male

DRUGS (1)
  1. QALSODY [Suspect]
     Active Substance: TOFERSEN
     Indication: Familial amyotrophic lateral sclerosis
     Route: 050
     Dates: start: 20250509

REACTIONS (1)
  - Metabolic acidosis [Not Recovered/Not Resolved]

NARRATIVE: CASE EVENT DATE: 20250605
